FAERS Safety Report 4608423-2 (Version None)
Quarter: 2005Q1

REPORT INFORMATION
  Report Type: 
  Country: None (occurrence: None)
  Receive Date: 20050309
  Receipt Date: 20050218
  Transmission Date: 20050727
  Serious: Yes (Other)
  Sender: FDA-Public Use
  Company Number: JP_050205935

PATIENT
  Age: 50 Year
  Sex: Female

DRUGS (3)
  1. ONCOVIN [Suspect]
  2. CYCLOPHOSPHAMIDE [Concomitant]
  3. PREDNISOLONE [Concomitant]

REACTIONS (1)
  - CONFUSIONAL STATE [None]
